FAERS Safety Report 4782527-6 (Version None)
Quarter: 2005Q3

REPORT INFORMATION
  Report Type: 
  Country: None (occurrence: None)
  Receive Date: 20050929
  Receipt Date: 20050218
  Transmission Date: 20060218
  Serious: No
  Sender: FDA-Public Use
  Company Number: 400426

PATIENT
  Age: 63 Year
  Sex: Male

DRUGS (7)
  1. COREG [Suspect]
     Dosage: 6.25MG TWICE PER DAY
     Route: 048
  2. DEMADEX [Concomitant]
  3. COREG [Concomitant]
  4. APRESOLINE [Concomitant]
  5. POTASSIUM [Concomitant]
  6. SPIRONOLACTONE [Concomitant]
  7. PRILOSEC [Concomitant]

REACTIONS (1)
  - HYPERCHOLESTEROLAEMIA [None]
